FAERS Safety Report 5735365-1 (Version None)
Quarter: 2008Q2

REPORT INFORMATION
  Report Type: 
  Country: None (occurrence: None)
  Receive Date: 20080505
  Receipt Date: 20080326
  Transmission Date: 20081010
  Serious: Yes (Other)
  Sender: FDA-Public Use
  Company Number: PHEH2008US03221

PATIENT
  Sex: Male

DRUGS (1)
  1. EXELON [Suspect]
     Dosage: 9.6 MG, TRANSDERMAL
     Route: 062

REACTIONS (5)
  - ANXIETY [None]
  - CONFUSIONAL STATE [None]
  - COORDINATION ABNORMAL [None]
  - EYE PRURITUS [None]
  - FATIGUE [None]
